FAERS Safety Report 21508330 (Version 1)
Quarter: 2022Q4

REPORT INFORMATION
  Report Type: Spontaneous
  Country: US (occurrence: US)
  Receive Date: 20221026
  Receipt Date: 20221026
  Transmission Date: 20230112
  Serious: Yes (Other)
  Sender: FDA-Public Use
  Company Number: US-MYLANLABS-2022M1117240

PATIENT
  Age: 79 Year
  Sex: Male

DRUGS (12)
  1. BACLOFEN [Suspect]
     Active Substance: BACLOFEN
     Indication: Muscle relaxant therapy
     Dosage: 10 THREE TIMES DAILY [UNIT NOT STATED]
     Route: 065
  2. CYCLOBENZAPRINE [Suspect]
     Active Substance: CYCLOBENZAPRINE
     Indication: Muscle relaxant therapy
     Dosage: 10 THREE TIMES DAILY [UNIT NOT STATED]
     Route: 065
  3. OXYCODONE [Suspect]
     Active Substance: OXYCODONE
     Indication: Procedural pain
     Dosage: 10 [UNIT NOT STATED]
     Route: 065
  4. OXYCODONE [Suspect]
     Active Substance: OXYCODONE
     Dosage: 20 [UNIT NOT STATED]
     Route: 065
  5. ACETAMINOPHEN [Concomitant]
     Active Substance: ACETAMINOPHEN
     Indication: Procedural pain
     Dosage: UNK, AFTER FIRST SURGERY
     Route: 065
  6. ACETAMINOPHEN [Concomitant]
     Active Substance: ACETAMINOPHEN
     Dosage: UNK, AFTER THIRD SURGERY
     Route: 065
  7. HYDROMORPHONE [Concomitant]
     Active Substance: HYDROMORPHONE
     Indication: Procedural pain
     Dosage: 2 [UNIT NOT STATED]
     Route: 048
  8. HYDROMORPHONE [Concomitant]
     Active Substance: HYDROMORPHONE
     Indication: Procedural pain
     Dosage: 1 [UNIT NOT STATED]
     Route: 042
  9. MEPERIDINE [Concomitant]
     Active Substance: MEPERIDINE
     Indication: Procedural pain
     Dosage: 25 [UNIT NOT STATED]
     Route: 042
  10. GABAPENTIN [Concomitant]
     Active Substance: GABAPENTIN
     Indication: Procedural pain
     Dosage: 300 THREE TIMES DAILY [UNIT NOT STATED]
     Route: 065
  11. MORPHINE [Concomitant]
     Active Substance: MORPHINE
     Indication: Procedural pain
     Dosage: 11.6 MILLIGRAM, QD
     Route: 065
  12. TRAMADOL [Concomitant]
     Active Substance: TRAMADOL
     Indication: Procedural pain
     Dosage: 425 [UNIT NOT STATED]
     Route: 065

REACTIONS (1)
  - Postoperative delirium [Recovering/Resolving]
